FAERS Safety Report 6981381-1 (Version None)
Quarter: 2010Q3

REPORT INFORMATION
  Report Type: 
  Country: None (occurrence: None)
  Receive Date: 20100914
  Receipt Date: 20100907
  Transmission Date: 20110219
  Serious: Yes (Other)
  Sender: FDA-Public Use
  Company Number: US-TEVA-247672USA

PATIENT
  Age: 15 Year
  Sex: Female

DRUGS (2)
  1. CLARAVIS [Suspect]
     Route: 048
  2. ISOTRETINOIN [Suspect]

REACTIONS (2)
  - DEPRESSION [None]
  - SUICIDAL IDEATION [None]
